FAERS Safety Report 9187264 (Version 2)
Quarter: 2013Q2

REPORT INFORMATION
  Report Type: Spontaneous
  Country: US (occurrence: US)
  Receive Date: 20130325
  Receipt Date: 20130510
  Transmission Date: 20140414
  Serious: Yes (Hospitalization, Other)
  Sender: FDA-Public Use
  Company Number: US-PFIZER INC-2013092959

PATIENT
  Age: 50 Year
  Sex: Female

DRUGS (3)
  1. CHANTIX [Suspect]
     Dosage: UNK
     Dates: start: 20061114, end: 20091118
  2. CHANTIX [Suspect]
     Dosage: STARTING PACK
     Dates: start: 20061114
  3. CHANTIX [Suspect]
     Dosage: 1 MG, CONTINUING PACK
     Dates: start: 20061206

REACTIONS (1)
  - Renal failure [Unknown]
